FAERS Safety Report 12875546 (Version 1)
Quarter: 2016Q4

REPORT INFORMATION
  Report Type: Spontaneous
  Country: US (occurrence: US)
  Receive Date: 20161024
  Receipt Date: 20161024
  Transmission Date: 20170207
  Serious: Yes (Hospitalization, Other)
  Sender: FDA-Public Use
  Company Number: US-ZYDUS-012510

PATIENT
  Age: 91 Year
  Sex: Female

DRUGS (3)
  1. HYDROXYCHLOROQUINE [Suspect]
     Active Substance: HYDROXYCHLOROQUINE
     Indication: RHEUMATOID ARTHRITIS
     Route: 065
  2. AMIODARONE [Suspect]
     Active Substance: AMIODARONE
     Indication: VENTRICULAR TACHYCARDIA
     Route: 065
  3. QUININE [Suspect]
     Active Substance: QUININE
     Indication: MUSCLE SPASMS
     Route: 065

REACTIONS (4)
  - Sinus bradycardia [Recovered/Resolved]
  - Long QT syndrome [Recovered/Resolved]
  - Torsade de pointes [Recovered/Resolved]
  - Extrasystoles [Recovered/Resolved]
